APPROVED DRUG PRODUCT: CETIRIZINE HYDROCHLORIDE
Active Ingredient: CETIRIZINE HYDROCHLORIDE
Strength: 5MG/5ML
Dosage Form/Route: SOLUTION;ORAL
Application: A078617 | Product #001
Applicant: ACTAVIS MID ATLANTIC LLC
Approved: Feb 2, 2010 | RLD: No | RS: No | Type: DISCN